FAERS Safety Report 5027397-6 (Version None)
Quarter: 2006Q2

REPORT INFORMATION
  Report Type: 
  Country: None (occurrence: None)
  Receive Date: 20060501
  Receipt Date: 20060213
  Transmission Date: 20061013
  Serious: No
  Sender: FDA-Public Use
  Company Number: 200610871BWH

PATIENT
  Age: 69 Year
  Sex: Female

DRUGS (5)
  1. NEXAVAR [Suspect]
     Indication: METASTASES TO LUNG
     Dosage: 400 MG, BID, ORAL
     Route: 048
     Dates: start: 20060117
  2. NEXAVAR [Suspect]
     Indication: RENAL CELL CARCINOMA STAGE UNSPECIFIED
     Dosage: 400 MG, BID, ORAL
     Route: 048
     Dates: start: 20060117
  3. TRIAMTERENE [Concomitant]
  4. SYNTHROID [Concomitant]
  5. POTASSIUM [Concomitant]

REACTIONS (6)
  - ASTHENIA [None]
  - BALANCE DISORDER [None]
  - DRY SKIN [None]
  - MUSCLE SPASMS [None]
  - PRURITUS [None]
  - RASH PRURITIC [None]
